FAERS Safety Report 25795433 (Version 1)
Quarter: 2025Q3

REPORT INFORMATION
  Report Type: Spontaneous
  Country: EU (occurrence: EU)
  Receive Date: 20250912
  Receipt Date: 20250912
  Transmission Date: 20251020
  Serious: Yes (Death, Hospitalization)
  Sender: RANBAXY
  Company Number: EU-SUN PHARMACEUTICAL INDUSTRIES LTD-2025RR-526840

PATIENT
  Age: 89 Year
  Sex: Male
  Weight: 69 kg

DRUGS (3)
  1. OXALIPLATIN [Suspect]
     Active Substance: OXALIPLATIN
     Indication: Gastric cancer stage IV
     Route: 040
     Dates: start: 20250129, end: 20250129
  2. KEYTRUDA [Suspect]
     Active Substance: PEMBROLIZUMAB
     Indication: Gastric cancer stage IV
     Route: 040
     Dates: start: 20250129, end: 20250129
  3. CAPECITABINE [Suspect]
     Active Substance: CAPECITABINE
     Indication: Gastric cancer stage IV
     Dosage: 2500 MILLIGRAM, DAILY
     Route: 048
     Dates: start: 20250129, end: 20250207

REACTIONS (3)
  - Influenza [Fatal]
  - Acute respiratory failure [Fatal]
  - Metabolic acidosis [Fatal]

NARRATIVE: CASE EVENT DATE: 20250207
